FAERS Safety Report 6211233-6 (Version None)
Quarter: 2009Q2

REPORT INFORMATION
  Report Type: 
  Country: None (occurrence: None)
  Receive Date: 20090528
  Receipt Date: 20090513
  Transmission Date: 20091009
  Serious: Yes (Hospitalization, Other)
  Sender: FDA-Public Use
  Company Number: 2009S1002879

PATIENT
  Age: 22 Year
  Sex: Female

DRUGS (4)
  1. AZATHIOPRINE [Suspect]
     Indication: CROHN'S DISEASE
     Dosage: 50 MG; DAILY; ORAL
     Route: 048
  2. HUMIRA [Suspect]
     Indication: CROHN'S DISEASE
     Dosage: 40 MG; EVERY OTHER WEEK
     Dates: start: 20080601
  3. AZATHIOPRINE [Concomitant]
  4. INFLIXIMAB [Concomitant]

REACTIONS (4)
  - ABORTION SPONTANEOUS [None]
  - ALOPECIA [None]
  - ANAL ABSCESS [None]
  - DRUG EXPOSURE DURING PREGNANCY [None]
